FAERS Safety Report 22027151 (Version 2)
Quarter: 2023Q1

REPORT INFORMATION
  Report Type: Report from Study
  Country: MX (occurrence: MX)
  Receive Date: 20230223
  Receipt Date: 20230307
  Transmission Date: 20230417
  Serious: No
  Sender: FDA-Public Use
  Company Number: MX-002147023-NVSC2023MX039317

PATIENT
  Age: 17 Year
  Sex: Male
  Weight: 66 kg

DRUGS (6)
  1. OMNITROPE [Suspect]
     Active Substance: SOMATROPIN
     Indication: Short stature
     Dosage: 2.7 MG, QD
     Route: 058
     Dates: start: 20221215
  2. OMNITROPE [Suspect]
     Active Substance: SOMATROPIN
     Dosage: 2.8 MG, QD
     Route: 058
     Dates: start: 20230210
  3. SYNTHROID [Concomitant]
     Active Substance: LEVOTHYROXINE SODIUM
     Indication: Blood thyroid stimulating hormone abnormal
     Dosage: 50 UG, QD (TAKING ONE TABLET DAILY 30 MINUTES BEFORE BREAKFAST)
     Route: 065
  4. SYNTHROID [Concomitant]
     Active Substance: LEVOTHYROXINE SODIUM
     Dosage: 1 DOSAGE FORM, Q24H
     Route: 048
     Dates: start: 20230208
  5. CIPROFLOXACIN [Concomitant]
     Active Substance: CIPROFLOXACIN
     Indication: Antibiotic therapy
     Dosage: 1 DOSAGE FORM, Q12H
     Route: 048
     Dates: start: 20221229, end: 202301
  6. SEA WATER [Concomitant]
     Active Substance: SEA WATER
     Indication: Nasal septal operation
     Dosage: UNK
     Route: 045
     Dates: start: 20221229, end: 202301

REACTIONS (1)
  - Drug effect less than expected [Unknown]

NARRATIVE: CASE EVENT DATE: 20230101
